FAERS Safety Report 8161584-3 (Version None)
Quarter: 2012Q1

REPORT INFORMATION
  Report Type: 
  Country: None (occurrence: None)
  Receive Date: 20120224
  Receipt Date: 20120220
  Transmission Date: 20120608
  Serious: Yes (Death, Other)
  Sender: FDA-Public Use
  Company Number: DE-GENZYME-THYM-1003139

PATIENT
  Age: 29 Year
  Sex: Female

DRUGS (15)
  1. THYMOGLOBULIN [Suspect]
     Indication: APLASTIC ANAEMIA
     Dosage: UNK
     Route: 065
  2. ALEMTUZUMAB [Suspect]
     Indication: BONE MARROW CONDITIONING REGIMEN
     Dosage: UNK
     Route: 065
  3. CYCLOSPORINE [Concomitant]
     Indication: APLASTIC ANAEMIA
     Dosage: UNK
     Route: 065
  4. THYMOGLOBULIN [Suspect]
     Dosage: UNK
     Route: 065
  5. ECULIZUMAB [Concomitant]
     Indication: PAROXYSMAL NOCTURNAL HAEMOGLOBINURIA
     Dosage: 2 CYCLES WITH TEN INFUSIONS EACH
     Route: 065
  6. MELPHALAN [Concomitant]
     Indication: BONE MARROW CONDITIONING REGIMEN
     Dosage: UNK
     Route: 065
  7. DEXAMETHASONE [Concomitant]
     Indication: APLASTIC ANAEMIA
     Dosage: UNK
     Route: 065
  8. MYCOPHENOLATE MOFETIL [Concomitant]
     Indication: APLASTIC ANAEMIA
     Dosage: UNK
     Route: 065
  9. THIOTEPA [Concomitant]
     Indication: BONE MARROW CONDITIONING REGIMEN
     Dosage: UNK
     Route: 065
  10. DEFERIPRONE [Concomitant]
     Indication: APLASTIC ANAEMIA
     Dosage: UNK
     Route: 065
  11. THYMOGLOBULIN [Suspect]
     Indication: BONE MARROW CONDITIONING REGIMEN
     Dosage: UNK
     Route: 065
  12. FLUDARA [Suspect]
     Indication: BONE MARROW CONDITIONING REGIMEN
     Dosage: UNK
     Route: 065
  13. FLUDARA [Suspect]
     Dosage: UNK
     Route: 065
  14. DEFEROXAMINE MESYLATE [Concomitant]
     Indication: APLASTIC ANAEMIA
     Dosage: UNK
     Route: 065
  15. CYCLOSPORINE [Concomitant]
     Dosage: UNK
     Route: 065

REACTIONS (6)
  - MYELODYSPLASTIC SYNDROME [None]
  - STEM CELL TRANSPLANT [None]
  - THERAPEUTIC RESPONSE DECREASED [None]
  - HAEMOLYSIS [None]
  - FUSARIUM INFECTION [None]
  - TRANSPLANT FAILURE [None]
